FAERS Safety Report 12126531 (Version 3)
Quarter: 2016Q2

REPORT INFORMATION
  Report Type: Spontaneous
  Country: SE (occurrence: SE)
  Receive Date: 20160229
  Receipt Date: 20160405
  Transmission Date: 20160815
  Serious: No
  Sender: FDA-Public Use
  Company Number: SE-JNJFOC-20160219818

PATIENT
  Age: 9 Decade
  Sex: Female

DRUGS (2)
  1. MATRIFEN [Suspect]
     Active Substance: FENTANYL
     Indication: PAIN
     Route: 062
  2. DUROGESIC [Suspect]
     Active Substance: FENTANYL
     Indication: PAIN
     Route: 062

REACTIONS (3)
  - Wrong technique in product usage process [Unknown]
  - Drug administration error [Unknown]
  - Product quality issue [Unknown]
